FAERS Safety Report 10649739 (Version 2)
Quarter: 2015Q1

REPORT INFORMATION
  Report Type: Spontaneous
  Country: US (occurrence: US)
  Receive Date: 20141212
  Receipt Date: 20150112
  Transmission Date: 20150720
  Serious: Yes (Other)
  Sender: FDA-Public Use
  Company Number: US-BAYER-2014-182263

PATIENT
  Age: 26 Year
  Sex: Female
  Weight: 95.24 kg

DRUGS (4)
  1. SAFYRAL [Concomitant]
     Active Substance: DROSPIRENONE\ETHINYL ESTRADIOL\LEVOMEFOLATE CALCIUM
     Dosage: UNK
     Route: 048
     Dates: start: 20121127
  2. LEXAPRO [Concomitant]
     Active Substance: ESCITALOPRAM OXALATE
  3. MIRENA [Suspect]
     Active Substance: LEVONORGESTREL
     Indication: CONTRACEPTION
     Dosage: 20 MCG/24HR, CONT
     Route: 015
     Dates: start: 20110607, end: 20130430
  4. NUVARING [Concomitant]
     Active Substance: ETHINYL ESTRADIOL\ETONOGESTREL
     Dosage: UNK
     Dates: start: 20121227

REACTIONS (16)
  - Genital haemorrhage [None]
  - Depression [None]
  - Injury [None]
  - Complication of device removal [None]
  - Emotional distress [None]
  - Scar pain [None]
  - Device breakage [None]
  - Anxiety [None]
  - Fear [None]
  - Internal injury [None]
  - Medical device discomfort [None]
  - Uterine perforation [None]
  - Pelvic pain [None]
  - Depressed mood [None]
  - Abdominal pain [None]
  - Device difficult to use [None]

NARRATIVE: CASE EVENT DATE: 201211
